FAERS Safety Report 10469246 (Version 2)
Quarter: 2015Q2

REPORT INFORMATION
  Report Type: Report from Study
  Country: JP (occurrence: JP)
  Receive Date: 20140923
  Receipt Date: 20150615
  Transmission Date: 20150821
  Serious: Yes (Death)
  Sender: FDA-Public Use
  Company Number: JP-ROCHE-1465114

PATIENT
  Age: 68 Year
  Sex: Male
  Weight: 49 kg

DRUGS (4)
  1. PALUX [Concomitant]
     Active Substance: ALPROSTADIL
     Dosage: DOSAGE IS UNCERTAIN.
     Route: 065
  2. LIVACT [Concomitant]
     Active Substance: AMINO ACIDS
     Dosage: DOSAGE IS UNCERTAIN.
     Route: 065
  3. METHOXY POLYETHYLENE GLYCOL-EPOETIN BETA [Suspect]
     Active Substance: METHOXY POLYETHYLENE GLYCOL-EPOETIN BETA
     Indication: NEPHROGENIC ANAEMIA
     Route: 042
     Dates: start: 20140812, end: 20140826
  4. URSO [Concomitant]
     Active Substance: URSODIOL
     Dosage: DOSAGE IS UNCERTAIN.
     Route: 065

REACTIONS (2)
  - Malaise [Fatal]
  - Hepatic encephalopathy [Fatal]

NARRATIVE: CASE EVENT DATE: 20140831
